FAERS Safety Report 7204436-5 (Version None)
Quarter: 2010Q4

REPORT INFORMATION
  Report Type: 
  Country: None (occurrence: None)
  Receive Date: 20101230
  Receipt Date: 20101223
  Transmission Date: 20110411
  Serious: Yes (Hospitalization, Other)
  Sender: FDA-Public Use
  Company Number: US-BRISTOL-MYERS SQUIBB COMPANY-15439466

PATIENT
  Age: 48 Year
  Sex: Female

DRUGS (3)
  1. BARACLUDE [Suspect]
     Indication: HEPATITIS B
     Dates: start: 20100820
  2. HEPSERA [Suspect]
     Dates: start: 20050301, end: 20090201
  3. VIREAD [Suspect]
     Dates: start: 20100701, end: 20100801

REACTIONS (1)
  - PANCYTOPENIA [None]
